FAERS Safety Report 5098915-7 (Version None)
Quarter: 2006Q3

REPORT INFORMATION
  Report Type: 
  Country: None (occurrence: None)
  Receive Date: 20060907
  Receipt Date: 20060830
  Transmission Date: 20061208
  Serious: Yes (Other)
  Sender: FDA-Public Use
  Company Number: ES-JNJFOC-20060900006

PATIENT
  Age: 50 Year
  Sex: Male

DRUGS (3)
  1. REMICADE [Suspect]
     Dosage: SIXTH INFUSION
     Route: 042
  2. REMICADE [Suspect]
     Indication: CROHN'S DISEASE
     Dosage: 5 INFUSIONS
     Route: 042
  3. METHOTREXATE [Concomitant]
     Route: 065

REACTIONS (4)
  - FOLLICULITIS [None]
  - PSORIASIS [None]
  - PUSTULAR PSORIASIS [None]
  - SKIN REACTION [None]
